FAERS Safety Report 6923284-4 (Version None)
Quarter: 2010Q3

REPORT INFORMATION
  Report Type: 
  Country: None (occurrence: None)
  Receive Date: 20100811
  Receipt Date: 20100727
  Transmission Date: 20110219
  Serious: Yes (Hospitalization)
  Sender: FDA-Public Use
  Company Number: A-NJ2010-34716

PATIENT
  Age: 48 Year
  Sex: Female

DRUGS (6)
  1. TRACLEER [Suspect]
     Indication: PULMONARY ARTERIAL HYPERTENSION
     Dosage: ORAL
     Route: 048
     Dates: start: 20080411
  2. FLOLAN [Concomitant]
  3. REVATIO (SILDENAFIL CIRATE) [Concomitant]
  4. PACERONE (AMIODRAONE HYDROCHLOIRDE) [Concomitant]
  5. CALCIUM CHANNEL BLOCKERS [Concomitant]
  6. COUMADIN [Concomitant]

REACTIONS (12)
  - ABDOMINAL DISTENSION [None]
  - ASCITES [None]
  - CONDITION AGGRAVATED [None]
  - DEVICE LEAKAGE [None]
  - DISEASE PROGRESSION [None]
  - HEPATOMEGALY [None]
  - MULTIPLE SCLEROSIS [None]
  - NEUROLOGICAL SYMPTOM [None]
  - PAIN IN EXTREMITY [None]
  - PULMONARY ARTERIAL HYPERTENSION [None]
  - RIGHT VENTRICULAR FAILURE [None]
  - WEIGHT INCREASED [None]
